FAERS Safety Report 7800829-3 (Version None)
Quarter: 2011Q4

REPORT INFORMATION
  Report Type: 
  Country: None (occurrence: None)
  Receive Date: 20111006
  Receipt Date: 20110929
  Transmission Date: 20120403
  Serious: Yes (Hospitalization, Other)
  Sender: FDA-Public Use
  Company Number: US-GILEAD-2011-0043743

PATIENT

DRUGS (7)
  1. TRUVADA [Suspect]
     Indication: HIV INFECTION
     Route: 048
     Dates: start: 20100701, end: 20110520
  2. REYATAZ [Suspect]
     Indication: HIV INFECTION
     Route: 048
     Dates: start: 20100701, end: 20110520
  3. ALDOMET                            /00000101/ [Concomitant]
     Indication: HYPERTENSION
     Dosage: 500 MG, TID
  4. ALDOMET                            /00000101/ [Concomitant]
     Dosage: 500 MG, BID
  5. LISINOPRIL [Suspect]
     Indication: HYPERTENSION
  6. LABETALOL HCL [Concomitant]
     Indication: HYPERTENSION
     Dosage: 200 MG, BID
  7. NORVIR [Suspect]
     Indication: HIV INFECTION
     Route: 048
     Dates: start: 20100701, end: 20110520

REACTIONS (2)
  - STILLBIRTH [None]
  - HYPERTENSION [None]
